FAERS Safety Report 22211362 (Version 1)
Quarter: 2023Q2

REPORT INFORMATION
  Report Type: Spontaneous
  Country: ES (occurrence: ES)
  Receive Date: 20230414
  Receipt Date: 20230414
  Transmission Date: 20230722
  Serious: Yes (Hospitalization, Other)
  Sender: FDA-Public Use
  Company Number: ES-MYLANLABS-2023M1034113

PATIENT
  Age: 74 Year
  Sex: Female

DRUGS (10)
  1. ACETAMINOPHEN [Suspect]
     Active Substance: ACETAMINOPHEN
     Indication: Analgesic therapy
     Dosage: UNK
     Route: 065
  2. SIMVASTATIN [Suspect]
     Active Substance: SIMVASTATIN
     Indication: Hypercholesterolaemia
     Dosage: 1 DOSAGE FORM, QD
     Route: 065
  3. MANIDIPINE [Suspect]
     Active Substance: MANIDIPINE
     Indication: Hypertension
     Dosage: 1 DOSAGE FORM, QD
     Route: 065
  4. LYRICA [Suspect]
     Active Substance: PREGABALIN
     Indication: Neuralgia
     Dosage: 1 DOSAGE FORM, BID (2X)
     Route: 065
  5. LYRICA [Suspect]
     Active Substance: PREGABALIN
     Dosage: 1 DOSAGE FORM, BID (2X)
     Route: 065
  6. TAPENTADOL HYDROCHLORIDE [Suspect]
     Active Substance: TAPENTADOL HYDROCHLORIDE
     Indication: Analgesic therapy
     Dosage: UNK
     Route: 065
  7. LORATADINE [Suspect]
     Active Substance: LORATADINE
     Indication: Rhinitis allergic
     Dosage: 1 DOSAGE FORM, QD
     Route: 065
  8. HYDROCHLOROTHIAZIDE\RAMIPRIL [Suspect]
     Active Substance: HYDROCHLOROTHIAZIDE\RAMIPRIL
     Indication: Hypertension
     Dosage: 1 DOSAGE FORM, QD
     Route: 065
  9. OMEPRAZOLE [Suspect]
     Active Substance: OMEPRAZOLE
     Indication: Product used for unknown indication
     Dosage: 1 DOSAGE FORM, BID (2X)
     Route: 065
  10. ASPIRIN [Suspect]
     Active Substance: ASPIRIN
     Indication: Product used for unknown indication
     Dosage: 1 DOSAGE FORM, QD
     Route: 065

REACTIONS (1)
  - Epilepsy [Unknown]

NARRATIVE: CASE EVENT DATE: 20221101
